FAERS Safety Report 8444513-4 (Version None)
Quarter: 2012Q2

REPORT INFORMATION
  Report Type: 
  Country: None (occurrence: None)
  Receive Date: 20120618
  Receipt Date: 20120614
  Transmission Date: 20120825
  Serious: Yes (Hospitalization)
  Sender: FDA-Public Use
  Company Number: ES-TEVA-330279USA

PATIENT
  Sex: Male
  Weight: 85 kg

DRUGS (6)
  1. ETOPOSIDE [Suspect]
     Indication: LYMPHOMA
  2. CYTARABINE [Suspect]
     Indication: LYMPHOMA
  3. MELPHALAN HYDROCHLORIDE [Concomitant]
  4. BENDAMUSTINE HYDROCHLORIDE [Suspect]
     Indication: LYMPHOMA
     Dosage: 391 MILLIGRAM;
     Route: 042
     Dates: start: 20120316
  5. ACYCLOVIR [Concomitant]
     Dates: start: 20120317, end: 20120319
  6. LEVOFLOXACIN [Concomitant]
     Dates: start: 20120317, end: 20120321

REACTIONS (1)
  - RENAL FAILURE ACUTE [None]
